FAERS Safety Report 11606697 (Version 2)
Quarter: 2015Q4

REPORT INFORMATION
  Report Type: Spontaneous
  Country: NL (occurrence: NL)
  Receive Date: 20151007
  Receipt Date: 20151130
  Transmission Date: 20160304
  Serious: Yes (Hospitalization, Other)
  Sender: FDA-Public Use
  Company Number: NL-BAYER-2015-432994

PATIENT
  Age: 16 Year
  Sex: Female

DRUGS (1)
  1. MIRENA [Suspect]
     Active Substance: LEVONORGESTREL
     Dosage: 20 MCG/24HR, CONT
     Route: 015
     Dates: start: 20150615

REACTIONS (5)
  - Abdominal pain [Recovered/Resolved]
  - Abdominal pain [None]
  - Infection [Recovered/Resolved]
  - Pyrexia [Recovered/Resolved]
  - Pelvic fluid collection [None]

NARRATIVE: CASE EVENT DATE: 2015
